FAERS Safety Report 11885540 (Version 2)
Quarter: 2016Q1

REPORT INFORMATION
  Report Type: Spontaneous
  Country: JP (occurrence: JP)
  Receive Date: 20160104
  Receipt Date: 20160107
  Transmission Date: 20160526
  Serious: Yes (Death, Other)
  Sender: FDA-Public Use
  Company Number: JP-PFIZER INC-2015463483

PATIENT
  Age: 80 Year
  Sex: Male

DRUGS (3)
  1. FIBRINOGEN HT [Concomitant]
     Dosage: UNK
     Route: 042
  2. CEFAZOLIN SODIUM. [Concomitant]
     Active Substance: CEFAZOLIN SODIUM
     Dosage: UNK
  3. ZOSYN [Suspect]
     Active Substance: PIPERACILLIN SODIUM\TAZOBACTAM SODIUM
     Indication: SEPSIS
     Dosage: UNK
     Route: 042

REACTIONS (3)
  - Sepsis [Fatal]
  - International normalised ratio increased [Recovered/Resolved]
  - Condition aggravated [Fatal]
